FAERS Safety Report 19591893 (Version 1)
Quarter: 2021Q3

REPORT INFORMATION
  Report Type: Spontaneous
  Country: US (occurrence: US)
  Receive Date: 20210721
  Receipt Date: 20210721
  Transmission Date: 20211014
  Serious: No
  Sender: FDA-Public Use
  Company Number: None

PATIENT
  Age: 74 Year
  Sex: Female
  Weight: 78.47 kg

DRUGS (12)
  1. ALEVE [Concomitant]
     Active Substance: NAPROXEN SODIUM
  2. LEVOTHYROXIN [Concomitant]
     Active Substance: LEVOTHYROXINE
  3. MEN^S ONCE A DAY VITAMIN [Concomitant]
  4. ATENOLOL. [Concomitant]
     Active Substance: ATENOLOL
  5. BAYER LOW DOSE [Concomitant]
     Active Substance: ASPIRIN
  6. CALCIUM MAGNESIUM + ZINC PLUS [Concomitant]
  7. VITAMIN B12 [Concomitant]
     Active Substance: CYANOCOBALAMIN
  8. ZEGERID [Concomitant]
     Active Substance: OMEPRAZOLE\SODIUM BICARBONATE
  9. CALTRATE + CALCIUM + VITAMIN D3 [Concomitant]
  10. GABAPENTIN 100MG [Suspect]
     Active Substance: GABAPENTIN
     Indication: PARAESTHESIA
     Dosage: ?          QUANTITY:1 DF DOSAGE FORM;?
     Route: 048
     Dates: start: 202105
  11. TYLENOL [Concomitant]
     Active Substance: ACETAMINOPHEN
  12. VALSARTAN. [Concomitant]
     Active Substance: VALSARTAN

REACTIONS (8)
  - Dyspnoea [None]
  - Palpitations [None]
  - Fall [None]
  - Fatigue [None]
  - Asthenia [None]
  - Heart valve incompetence [None]
  - Peripheral swelling [None]
  - Cardiomegaly [None]

NARRATIVE: CASE EVENT DATE: 202105
